FAERS Safety Report 20083182 (Version 1)
Quarter: 2021Q4

REPORT INFORMATION
  Report Type: Spontaneous
  Country: DE (occurrence: DE)
  Receive Date: 20211117
  Receipt Date: 20211117
  Transmission Date: 20220303
  Serious: Yes (Hospitalization)
  Sender: FDA-Public Use
  Company Number: DE-ADRED-06009-01

PATIENT
  Age: 80 Year
  Sex: Female
  Weight: 60 kg

DRUGS (7)
  1. HYDROCHLOROTHIAZIDE\VALSARTAN [Suspect]
     Active Substance: HYDROCHLOROTHIAZIDE\VALSARTAN
     Indication: Product used for unknown indication
     Dosage: 25|320 MG, 0.5-0-0-0, TABLETTEN
     Route: 048
  2. PANTOPRAZOLE [Concomitant]
     Active Substance: PANTOPRAZOLE
     Dosage: 40 MILLIGRAM, PRN (AS NEEDED, TABLETS)
     Route: 048
  3. LEVOTHYROXINE SODIUM [Concomitant]
     Active Substance: LEVOTHYROXINE SODIUM
     Dosage: 115 ?G, 1-0-0-0, TABLETTEN
     Route: 048
  4. ASPIRIN [Concomitant]
     Active Substance: ASPIRIN
     Dosage: 100 MG, 1-0-0-0, TABLETTEN
     Route: 048
  5. METAMIZOL                          /06276701/ [Concomitant]
     Dosage: 500 MG, BEI BEDARF, TABLETTEN
     Route: 048
  6. BISOPROLOL [Concomitant]
     Active Substance: BISOPROLOL
     Dosage: 2.5 MILLIGRAM, QD (5 MG, 0.5-0-0-0, TABLETTEN)
     Route: 048
  7. VALSARTAN [Concomitant]
     Active Substance: VALSARTAN
     Dosage: 160 MG, 0-0-1-0, TABLETTEN
     Route: 048

REACTIONS (4)
  - Tachycardia [Unknown]
  - Tachypnoea [Unknown]
  - General physical health deterioration [Unknown]
  - Dehydration [Unknown]
